FAERS Safety Report 15726583 (Version 1)
Quarter: 2018Q4

REPORT INFORMATION
  Report Type: Spontaneous
  Country: US (occurrence: US)
  Receive Date: 20181217
  Receipt Date: 20181217
  Transmission Date: 20190205
  Serious: No
  Sender: FDA-Public Use
  Company Number: US-NOVOPROD-586567

PATIENT
  Sex: Female

DRUGS (3)
  1. LEVEMIR [Suspect]
     Active Substance: INSULIN DETEMIR
     Dosage: 32 U, QD
     Route: 058
     Dates: start: 20180215, end: 20180215
  2. LEVEMIR [Suspect]
     Active Substance: INSULIN DETEMIR
     Indication: TYPE 2 DIABETES MELLITUS
     Dosage: 26 U, QD (AT NIGHT)
     Route: 058
     Dates: start: 20180209, end: 20180211
  3. LEVEMIR [Suspect]
     Active Substance: INSULIN DETEMIR
     Dosage: 29 U, QD
     Route: 058
     Dates: start: 20180212, end: 20180214

REACTIONS (4)
  - Nausea [Unknown]
  - Renal pain [Not Recovered/Not Resolved]
  - Chest pain [Recovering/Resolving]
  - Condition aggravated [Not Recovered/Not Resolved]

NARRATIVE: CASE EVENT DATE: 20180209
